FAERS Safety Report 7894274-2 (Version None)
Quarter: 2011Q4

REPORT INFORMATION
  Report Type: 
  Country: None (occurrence: None)
  Receive Date: 20111104
  Receipt Date: 20111019
  Transmission Date: 20120403
  Serious: Yes (Hospitalization)
  Sender: FDA-Public Use
  Company Number: DE-ROCHE-1002183

PATIENT
  Sex: Female
  Weight: 65 kg

DRUGS (8)
  1. VOTUM (GERMANY) [Concomitant]
     Dosage: DAILY DOSE 1X
     Dates: start: 20090901
  2. AVASTIN [Suspect]
     Indication: BREAST CANCER
     Dosage: DAYS 1, LAST DOSE PRIOR TO SAE 16 AUG 2011
     Route: 042
     Dates: start: 20090706
  3. THEVIER [Concomitant]
     Dosage: STRENGTH 100, DOSE 1X
     Dates: start: 20090101
  4. XELODA [Suspect]
     Indication: BREAST CANCER
     Dosage: DAY 1-14,  LAST DOSE PRIOR TO SAE 26 SEP 2011
     Route: 048
     Dates: start: 20090706
  5. PANTOPRAZOLE SODIUM [Concomitant]
     Dates: start: 20110711, end: 20111011
  6. VINORELBINE TARTRATE [Suspect]
     Indication: BREAST CANCER
     Dosage: DAYS 1+8,  LAST DOSE PRIOR TO SAE 20 SEP 2011
     Route: 042
     Dates: start: 20090706
  7. NEBIVOLOL HCL [Concomitant]
     Dosage: 1/2-0-1/2
     Dates: start: 20100413
  8. LERCANIDIPINE [Concomitant]
     Dosage: 1-0-1
     Dates: start: 20100720

REACTIONS (1)
  - OSTEONECROSIS [None]
